FAERS Safety Report 21967262 (Version 3)
Quarter: 2023Q2

REPORT INFORMATION
  Report Type: Spontaneous
  Country: JP (occurrence: JP)
  Receive Date: 20230208
  Receipt Date: 20230405
  Transmission Date: 20230721
  Serious: Yes (Other)
  Sender: FDA-Public Use
  Company Number: JP-MYLANLABS-2023M1012460

PATIENT
  Age: 67 Year
  Sex: Male

DRUGS (2)
  1. CARBOPLATIN [Suspect]
     Active Substance: CARBOPLATIN
     Indication: Small cell lung cancer limited stage
     Dosage: CYCLE, AUC5, ONLY ONE COURSE ADMINISTERED
     Route: 042
  2. ETOPOSIDE [Suspect]
     Active Substance: ETOPOSIDE
     Indication: Small cell lung cancer limited stage
     Dosage: CYCLE, ONE COURSE ADMINISTERED
     Route: 065

REACTIONS (3)
  - Disease progression [Recovering/Resolving]
  - Neutrophil count decreased [Unknown]
  - Drug ineffective [Unknown]
